FAERS Safety Report 5066085-7 (Version None)
Quarter: 2006Q3

REPORT INFORMATION
  Report Type: 
  Country: None (occurrence: None)
  Receive Date: 20060725
  Receipt Date: 20060716
  Transmission Date: 20061208
  Serious: Yes (Life-Threatening, Hospitalization)
  Sender: FDA-Public Use
  Company Number: 111531ISR

PATIENT
  Age: 56 Year
  Sex: Male

DRUGS (2)
  1. FLUOROURACIL [Suspect]
     Indication: COLON CANCER
     Dosage: 1200 MG/M2, INTRAVENOUS (NOS)
     Route: 042
     Dates: start: 20020910
  2. FOLINIC ACID [Concomitant]

REACTIONS (20)
  - AGITATION [None]
  - BLOOD PRESSURE INCREASED [None]
  - COMA [None]
  - ENCEPHALOPATHY [None]
  - EXTENSOR PLANTAR RESPONSE [None]
  - HAEMOGLOBIN DECREASED [None]
  - HYPERAMMONAEMIA [None]
  - HYPERREFLEXIA [None]
  - HYPERVENTILATION [None]
  - HYPOTHERMIA [None]
  - INCOHERENT [None]
  - INFUSION RELATED REACTION [None]
  - JOINT HYPEREXTENSION [None]
  - LACTIC ACIDOSIS [None]
  - LEUKOCYTOSIS [None]
  - NEUROLOGICAL SYMPTOM [None]
  - PRESSURE OF SPEECH [None]
  - RENAL IMPAIRMENT [None]
  - UNRESPONSIVE TO STIMULI [None]
  - VOMITING [None]
